FAERS Safety Report 8490553-9 (Version None)
Quarter: 2012Q3

REPORT INFORMATION
  Report Type: 
  Country: None (occurrence: None)
  Receive Date: 20120705
  Receipt Date: 20120703
  Transmission Date: 20120928
  Serious: Yes (Death)
  Sender: FDA-Public Use
  Company Number: US-ABBOTT-12P-163-0921694-00

PATIENT
  Sex: Female
  Weight: 34.05 kg

DRUGS (17)
  1. METHADONE HCL [Concomitant]
     Indication: ABDOMINAL PAIN UPPER
     Dosage: UP TO 10 TABLETS DAILY
  2. LAMICTAL [Concomitant]
     Indication: PRODUCT USED FOR UNKNOWN INDICATION
  3. NAMENDA [Concomitant]
     Indication: DEMENTIA
  4. METHADONE HCL [Concomitant]
     Indication: PANCREATITIS
  5. SEROQUEL [Concomitant]
     Indication: MIGRAINE PROPHYLAXIS
     Dosage: AT BEDTIME
  6. KEPPRA [Concomitant]
     Indication: PRODUCT USED FOR UNKNOWN INDICATION
  7. PHENERGAN HCL [Concomitant]
     Indication: NAUSEA
  8. ARICEPT [Concomitant]
     Indication: DEMENTIA
     Dosage: EVERY MORNING
  9. ENTOCORT EC [Concomitant]
     Indication: PRODUCT USED FOR UNKNOWN INDICATION
  10. PREMARIN [Concomitant]
     Indication: PRODUCT USED FOR UNKNOWN INDICATION
  11. TRAZODONE HCL [Concomitant]
     Indication: INSOMNIA
     Dosage: 1 TO 2 TABLETS AT NIGHT
  12. CREON [Concomitant]
     Indication: GASTROINTESTINAL DISORDER
     Dosage: BEFORE MEALS AND AT BEDTIME
  13. HUMIRA [Suspect]
     Indication: CROHN'S DISEASE
     Dates: end: 20090101
  14. ZOFRAN [Concomitant]
     Indication: NAUSEA
  15. ZOLOFT [Concomitant]
     Indication: DEPRESSION
     Dosage: DAILY DOSE: 50MG
  16. CEREFOLIN [Concomitant]
     Indication: PRODUCT USED FOR UNKNOWN INDICATION
  17. REMICADE [Concomitant]
     Indication: PRODUCT USED FOR UNKNOWN INDICATION
     Dosage: Q 2 XXXX

REACTIONS (2)
  - CARDIAC ARREST [None]
  - ASTHENIA [None]
